FAERS Safety Report 11121605 (Version 1)
Quarter: 2015Q2

REPORT INFORMATION
  Report Type: Spontaneous
  Country: US (occurrence: None)
  Receive Date: 20150518
  Receipt Date: 20150518
  Transmission Date: 20150821
  Serious: No
  Sender: FDA-Public Use
  Company Number: None

PATIENT
  Age: 47 Year
  Sex: Female

DRUGS (3)
  1. CAPECITABINE 500 MG [Suspect]
     Active Substance: CAPECITABINE
     Indication: COLON CANCER
     Dosage: QPM
     Route: 048
     Dates: start: 20140404, end: 201505
  2. CAPECITABINE 500 MG [Suspect]
     Active Substance: CAPECITABINE
     Indication: HEPATIC CANCER
     Dosage: QPM
     Route: 048
     Dates: start: 20140404, end: 201505
  3. CAPECITABINE 500 MG [Suspect]
     Active Substance: CAPECITABINE
     Indication: BREAST CANCER
     Dosage: QPM
     Route: 048
     Dates: start: 20140404, end: 201505

REACTIONS (1)
  - Tumour marker increased [None]

NARRATIVE: CASE EVENT DATE: 201505
